FAERS Safety Report 24963135 (Version 1)
Quarter: 2025Q1

REPORT INFORMATION
  Report Type: Spontaneous
  Country: US (occurrence: US)
  Receive Date: 20250213
  Receipt Date: 20250213
  Transmission Date: 20250408
  Serious: Yes (Hospitalization, Disabling, Other)
  Sender: SPECGX
  Company Number: US-SPECGX-T202500377

PATIENT
  Age: 53 Year
  Sex: Female

DRUGS (13)
  1. OXYCODONE [Suspect]
     Active Substance: OXYCODONE
     Indication: Pain
     Dosage: 10 MILLIGRAM, QD
     Route: 065
  2. COVID-19 VACCINE NOS [Suspect]
     Active Substance: COVID-19 VACCINE
     Indication: Product used for unknown indication
     Route: 065
     Dates: start: 202109
  3. FENTANYL [Suspect]
     Active Substance: FENTANYL
     Indication: Pain
     Route: 065
  4. LIDOCAINE [Suspect]
     Active Substance: LIDOCAINE
     Indication: Product used for unknown indication
     Route: 062
  5. SIMVASTATIN [Suspect]
     Active Substance: SIMVASTATIN
     Indication: Blood cholesterol abnormal
     Dosage: 20 MILLIGRAM, QHS
     Route: 065
  6. DEXTROAMPHETAMINE SULFATE [Concomitant]
     Active Substance: DEXTROAMPHETAMINE SULFATE
     Indication: Disturbance in attention
     Route: 065
  7. VITAMIN B3 [Concomitant]
     Active Substance: NIACIN
     Indication: Product used for unknown indication
     Route: 065
  8. GABAPENTIN [Concomitant]
     Active Substance: GABAPENTIN
     Indication: Neuralgia
     Dosage: 300 MILLIGRAM, QHS
     Route: 065
  9. IMITREX [Concomitant]
     Active Substance: SUMATRIPTAN SUCCINATE
     Indication: Migraine
     Route: 065
  10. MAGNESIUM [Concomitant]
     Active Substance: MAGNESIUM
     Indication: Product used for unknown indication
     Route: 065
  11. LEVBID [Concomitant]
     Active Substance: HYOSCYAMINE SULFATE
     Indication: Abdominal pain
     Route: 065
  12. FAMOTIDINE [Concomitant]
     Active Substance: FAMOTIDINE
     Indication: Product used for unknown indication
     Route: 065
  13. ADDERALL [Concomitant]
     Active Substance: AMPHETAMINE ASPARTATE\AMPHETAMINE SULFATE\DEXTROAMPHETAMINE SACCHARATE\DEXTROAMPHETAMINE SULFATE
     Indication: Disturbance in attention
     Route: 065

REACTIONS (37)
  - Hospitalisation [Unknown]
  - Loss of consciousness [Unknown]
  - Disability [Unknown]
  - Cardiac therapeutic procedure [Unknown]
  - Chronic kidney disease [Unknown]
  - Nasal valve collapse [Unknown]
  - Spinal stenosis [Unknown]
  - Aortic stenosis [Unknown]
  - COVID-19 [Unknown]
  - Fall [Unknown]
  - Atrial fibrillation [Unknown]
  - Head injury [Unknown]
  - Varicose vein [Unknown]
  - Pyloric stenosis [Unknown]
  - Blindness [Unknown]
  - Hemiparesis [Unknown]
  - Urinary retention [Unknown]
  - Impaired driving ability [Unknown]
  - Muscle spasms [Unknown]
  - Weight decreased [Unknown]
  - Pelvic floor stimulation [Unknown]
  - Impaired work ability [Unknown]
  - Amnesia [Unknown]
  - Deafness [Unknown]
  - Dysuria [Unknown]
  - Illness [Unknown]
  - Walking aid user [Unknown]
  - Bedridden [Unknown]
  - Pain [Unknown]
  - Blood pressure decreased [Unknown]
  - Oedema [Unknown]
  - Vomiting [Unknown]
  - Arthralgia [Unknown]
  - Anxiety [Unknown]
  - Dizziness [Unknown]
  - Cardiac disorder [Unknown]
  - Insomnia [Unknown]

NARRATIVE: CASE EVENT DATE: 20210101
